FAERS Safety Report 17997559 (Version 3)
Quarter: 2020Q4

REPORT INFORMATION
  Report Type: Report from Study
  Country: None (occurrence: FR)
  Receive Date: 20200709
  Receipt Date: 20201006
  Transmission Date: 20210113
  Serious: Yes (Death, Hospitalization)
  Sender: FDA-Public Use
  Company Number: FR-ABBVIE-20K-056-3474631-00

PATIENT
  Sex: Female

DRUGS (2)
  1. DUODOPA [Suspect]
     Active Substance: CARBIDOPA\LEVODOPA
  2. DUODOPA [Suspect]
     Active Substance: CARBIDOPA\LEVODOPA
     Indication: PARKINSON^S DISEASE
     Dosage: 20MG/ML 5MG/ML
     Route: 050
     Dates: start: 20180910

REACTIONS (4)
  - Septic shock [Fatal]
  - Pyelonephritis [Unknown]
  - Device issue [Unknown]
  - Device kink [Unknown]

NARRATIVE: CASE EVENT DATE: 2020
